FAERS Safety Report 12755316 (Version 1)
Quarter: 2016Q3

REPORT INFORMATION
  Report Type: Spontaneous
  Country: US (occurrence: US)
  Receive Date: 20160916
  Receipt Date: 20160916
  Transmission Date: 20161109
  Serious: No
  Sender: FDA-Public Use
  Company Number: US-BAYER-2016-177031

PATIENT
  Age: 4 Year
  Sex: Female
  Weight: 13.61 kg

DRUGS (2)
  1. CHILDREN CLARITIN ALLERGY [Suspect]
     Active Substance: LORATADINE
     Indication: SEASONAL ALLERGY
     Dosage: 1 DF, QD
     Dates: start: 201608
  2. CHILDREN CLARITIN ALLERGY [Suspect]
     Active Substance: LORATADINE
     Indication: SEASONAL ALLERGY
     Dosage: 6 DF, UNK
     Route: 048
     Dates: start: 20160909, end: 20160909

REACTIONS (2)
  - Accidental exposure to product by child [Recovered/Resolved]
  - Failure of child resistant mechanism for pharmaceutical product [None]

NARRATIVE: CASE EVENT DATE: 20160909
